FAERS Safety Report 4598754-7 (Version None)
Quarter: 2005Q1

REPORT INFORMATION
  Report Type: 
  Country: None (occurrence: None)
  Receive Date: 20050301
  Receipt Date: 20050222
  Transmission Date: 20050727
  Serious: Yes (Life-Threatening, Hospitalization, Disabling)
  Sender: FDA-Public Use
  Company Number: APP200500090

PATIENT
  Age: 40 Day

DRUGS (1)
  1. AMPICILLIN [Suspect]
     Indication: SEPSIS
     Dosage: (375 MG), INTRAVENOUS
     Route: 042
     Dates: start: 20050127

REACTIONS (3)
  - AIR EMBOLISM [None]
  - CARDIO-RESPIRATORY ARREST [None]
  - CYANOSIS [None]
